FAERS Safety Report 5632182-8 (Version None)
Quarter: 2008Q1

REPORT INFORMATION
  Report Type: 
  Country: None (occurrence: None)
  Receive Date: 20080220
  Receipt Date: 20080113
  Transmission Date: 20080703
  Serious: Yes (Hospitalization)
  Sender: FDA-Public Use
  Company Number: GB-AVENTIS-200721211GDDC

PATIENT
  Age: 53 Year
  Sex: Female
  Weight: 72 kg

DRUGS (6)
  1. DOCETAXEL [Suspect]
     Route: 042
     Dates: start: 20071115, end: 20071115
  2. DOCETAXEL [Suspect]
  3. ANTINEOPLASTIC AGENTS [Suspect]
     Route: 048
     Dates: start: 20071116, end: 20071118
  4. DEXAMETHASONE TAB [Concomitant]
     Dosage: DOSE: UNK
     Route: 048
     Dates: start: 20071114, end: 20071116
  5. DOMPERIDONE [Concomitant]
     Dosage: DOSE: UNK
     Route: 048
     Dates: start: 20071116
  6. ONDANSETRON [Concomitant]
     Dosage: DOSE: UNK
     Route: 048
     Dates: start: 20071115

REACTIONS (3)
  - ABDOMINAL PAIN [None]
  - NEUTROPENIC SEPSIS [None]
  - VOMITING [None]
